FAERS Safety Report 23328855 (Version 1)
Quarter: 2023Q4

REPORT INFORMATION
  Report Type: Report from Study
  Country: CA (occurrence: CA)
  Receive Date: 20231222
  Receipt Date: 20231222
  Transmission Date: 20240109
  Serious: Yes (Other)
  Sender: FDA-Public Use
  Company Number: CA-JNJFOC-20230822904

PATIENT
  Age: 39 Year
  Sex: Female

DRUGS (2)
  1. REMICADE [Suspect]
     Active Substance: INFLIXIMAB
     Indication: Colitis ulcerative
     Dosage: EXPIRY DATE:01-NOV-2025
     Route: 041
     Dates: start: 20230613
  2. REMICADE [Suspect]
     Active Substance: INFLIXIMAB
     Route: 041
     Dates: start: 20150730

REACTIONS (8)
  - Pneumonia [Recovered/Resolved]
  - Ear infection [Recovered/Resolved]
  - Localised infection [Recovered/Resolved]
  - Psoriasis [Not Recovered/Not Resolved]
  - Bronchitis [Recovered/Resolved]
  - Staphylococcal infection [Recovered/Resolved]
  - Arthritis [Unknown]
  - Therapeutic product effect decreased [Unknown]

NARRATIVE: CASE EVENT DATE: 20230101
